FAERS Safety Report 16253128 (Version 2)
Quarter: 2019Q2

REPORT INFORMATION
  Report Type: Spontaneous
  Country: US (occurrence: US)
  Receive Date: 20190429
  Receipt Date: 20190501
  Transmission Date: 20190711
  Serious: No
  Sender: FDA-Public Use
  Company Number: US-SA-2019SA114598

PATIENT
  Sex: Male

DRUGS (1)
  1. SOLIQUA 100/33 [Suspect]
     Active Substance: INSULIN GLARGINE\LIXISENATIDE
     Indication: TYPE 2 DIABETES MELLITUS
     Dosage: 26 U, QD
     Route: 065
     Dates: start: 201901

REACTIONS (5)
  - Oropharyngeal pain [Unknown]
  - Condition aggravated [Unknown]
  - Rhinorrhoea [Unknown]
  - Drug hypersensitivity [Unknown]
  - Cough [Unknown]
